FAERS Safety Report 24674506 (Version 2)
Quarter: 2024Q4

REPORT INFORMATION
  Report Type: Spontaneous
  Country: US (occurrence: US)
  Receive Date: 20241128
  Receipt Date: 20241128
  Transmission Date: 20250114
  Serious: Yes (Hospitalization, Other)
  Sender: AMGEN
  Company Number: US-AMGEN-USASP2024231864

PATIENT
  Age: 30 Year
  Sex: Female

DRUGS (10)
  1. PREDNISONE [Suspect]
     Active Substance: PREDNISONE
     Indication: Glomerulonephritis membranoproliferative
     Dosage: UNK (LOWER DOSE)
     Route: 065
  2. PREDNISONE [Suspect]
     Active Substance: PREDNISONE
     Dosage: 20 MILLIGRAM, QD (FOR MANY YEARS)
     Route: 065
  3. PREDNISONE [Suspect]
     Active Substance: PREDNISONE
     Dosage: UNK (TAPER)
     Route: 065
  4. PREDNISONE [Suspect]
     Active Substance: PREDNISONE
     Dosage: 5 MILLIGRAM
     Route: 065
  5. PREDNISONE [Suspect]
     Active Substance: PREDNISONE
     Dosage: 50 MILLIGRAM, QD
     Route: 065
  6. RITUXIMAB [Suspect]
     Active Substance: RITUXIMAB
     Indication: Immune-complex membranoproliferative glomerulonephritis
     Dosage: UNK
     Route: 065
  7. MYCOPHENOLATE MOFETIL [Concomitant]
     Active Substance: MYCOPHENOLATE MOFETIL
     Indication: Glomerulonephritis membranoproliferative
     Route: 065
  8. CORTICOTROPIN [Concomitant]
     Active Substance: CORTICOTROPIN
     Indication: Glomerulonephritis membranoproliferative
     Dosage: UNK (REPOSITORY INJECTION)
     Route: 065
  9. CORTICOTROPIN [Concomitant]
     Active Substance: CORTICOTROPIN
     Indication: Immune-complex membranoproliferative glomerulonephritis
     Dosage: 80 MILLIGRAM, Q2WK
     Route: 065
  10. CYCLOPHOSPHAMIDE [Concomitant]
     Active Substance: CYCLOPHOSPHAMIDE
     Indication: Immune-complex membranoproliferative glomerulonephritis
     Route: 065

REACTIONS (8)
  - Suicidal ideation [Unknown]
  - Glomerulonephritis membranoproliferative [Recovering/Resolving]
  - Immune-complex membranoproliferative glomerulonephritis [Recovering/Resolving]
  - Acute kidney injury [Unknown]
  - Depression [Unknown]
  - Drug effective for unapproved indication [Unknown]
  - Drug ineffective for unapproved indication [Unknown]
  - Off label use [Unknown]
